FAERS Safety Report 7103474-0 (Version None)
Quarter: 2010Q4

REPORT INFORMATION
  Report Type: 
  Country: None (occurrence: None)
  Receive Date: 20101109
  Receipt Date: 20101025
  Transmission Date: 20110411
  Serious: Yes (Hospitalization)
  Sender: FDA-Public Use
  Company Number: 2010004607

PATIENT
  Age: 59 Year
  Sex: Female

DRUGS (2)
  1. ERLOTINIB HYDROCHLORIDE [Suspect]
     Indication: NON-SMALL CELL LUNG CANCER
     Dosage: 100 QD, ORAL
     Route: 048
     Dates: start: 20100630
  2. PERTUZUMAB [Suspect]
     Indication: NON-SMALL CELL LUNG CANCER
     Dosage: 420 (1 IN 21 D), INTRAVENOUS
     Route: 042
     Dates: start: 20100630

REACTIONS (4)
  - DIARRHOEA [None]
  - NAUSEA [None]
  - PNEUMATOSIS [None]
  - RASH [None]
